FAERS Safety Report 12494955 (Version 1)
Quarter: 2016Q2

REPORT INFORMATION
  Report Type: Other
  Country: DE (occurrence: DE)
  Receive Date: 20160624
  Receipt Date: 20160624
  Transmission Date: 20160815
  Serious: Yes (Other)
  Sender: FDA-Public Use
  Company Number: DE-CIPLA LTD.-2016DE08054

PATIENT

DRUGS (5)
  1. GEMCITABINE [Suspect]
     Active Substance: GEMCITABINE\GEMCITABINE HYDROCHLORIDE
     Indication: METASTASES TO LIVER
     Dosage: 1000 MG/M2, UNK
     Route: 065
  2. PACLITAXEL. [Suspect]
     Active Substance: PACLITAXEL
     Indication: METASTASES TO LIVER
     Dosage: 125 MG/M2, UNK
     Route: 065
  3. FLUOROURACIL. [Concomitant]
     Active Substance: FLUOROURACIL
     Indication: INTESTINAL ADENOCARCINOMA
     Dosage: 400 MG/M2, UNK
     Route: 040
  4. FOLINIC ACID [Concomitant]
     Active Substance: LEUCOVORIN
     Indication: INTESTINAL ADENOCARCINOMA
     Dosage: 400 MG/M2, UNK
     Route: 065
  5. OXALIPLATIN. [Suspect]
     Active Substance: OXALIPLATIN
     Indication: INTESTINAL ADENOCARCINOMA
     Dosage: 85 MG/M2, UNK
     Route: 065

REACTIONS (5)
  - Off label use [Unknown]
  - Neutropenia [Unknown]
  - Polyneuropathy [Unknown]
  - Thrombosis [Unknown]
  - Fatigue [Unknown]
